FAERS Safety Report 4393374-1 (Version None)
Quarter: 2004Q3

REPORT INFORMATION
  Report Type: 
  Country: None (occurrence: None)
  Receive Date: 20040701
  Receipt Date: 20040618
  Transmission Date: 20050211
  Serious: Yes (Life-Threatening)
  Sender: FDA-Public Use
  Company Number: 2004JP001218

PATIENT
  Age: 10 Month
  Sex: Male

DRUGS (1)
  1. PROGRAF [Suspect]
     Indication: LIVER TRANSPLANT
     Dosage: 0.30 MG/KG, BID,
     Dates: start: 20010509, end: 20010509

REACTIONS (6)
  - COMA [None]
  - DRUG INEFFECTIVE [None]
  - INFECTION [None]
  - LIVER TRANSPLANT REJECTION [None]
  - PYREXIA [None]
  - VENOOCCLUSIVE LIVER DISEASE [None]
